FAERS Safety Report 7468051-0 (Version None)
Quarter: 2011Q2

REPORT INFORMATION
  Report Type: 
  Country: None (occurrence: None)
  Receive Date: 20110509
  Receipt Date: 20110321
  Transmission Date: 20111010
  Serious: Yes (Hospitalization)
  Sender: FDA-Public Use
  Company Number: US-ALEXION-A201100077

PATIENT
  Sex: Male

DRUGS (9)
  1. FOLIC ACID [Concomitant]
     Dosage: 800 MG, UNK
  2. SOLIRIS [Suspect]
     Indication: PAROXYSMAL NOCTURNAL HAEMOGLOBINURIA
     Dosage: 600 MG, QW
     Route: 042
     Dates: start: 20070426, end: 20070501
  3. CENTRUM SILVER [Concomitant]
     Dosage: UNK
  4. ASPIRIN [Concomitant]
     Dosage: UNK, QD
  5. NITROSTAT [Concomitant]
     Dosage: UNK
     Route: 060
  6. ADVIL LIQUI-GELS [Concomitant]
     Dosage: 200 MG, Q6HR, PRN
  7. SOLIRIS [Suspect]
     Dosage: 900 MG, Q2W
     Route: 042
     Dates: start: 20070524
  8. DABIGATRAN [Concomitant]
     Dosage: 150 MG, BID
  9. LESCOL [Concomitant]
     Dosage: 80 MG, QD

REACTIONS (3)
  - TREMOR [None]
  - ATRIAL FLUTTER [None]
  - VENTRICULAR TACHYCARDIA [None]
